FAERS Safety Report 9017144 (Version 1)
Quarter: 2013Q1

REPORT INFORMATION
  Report Type: Spontaneous
  Country: JP (occurrence: JP)
  Receive Date: 20130117
  Receipt Date: 20130117
  Transmission Date: 20140127
  Serious: Yes (Hospitalization)
  Sender: FDA-Public Use
  Company Number: JP-MYLANLABS-2013S1000448

PATIENT
  Age: 4 Year
  Sex: Male

DRUGS (6)
  1. PHENYTOIN [Suspect]
     Indication: INFANTILE SPASMS
     Route: 065
  2. VALPROATE [Suspect]
     Indication: INFANTILE SPASMS
     Route: 065
  3. GABAPENTIN [Suspect]
     Indication: INFANTILE SPASMS
     Route: 065
  4. CLONAZEPAM [Concomitant]
     Indication: INFANTILE SPASMS
     Route: 065
  5. RISPERIDONE [Concomitant]
     Indication: INFANTILE SPASMS
     Route: 065
  6. ZONISAMIDE [Concomitant]
     Indication: INFANTILE SPASMS
     Route: 065

REACTIONS (1)
  - Toxic epidermal necrolysis [Recovering/Resolving]
